FAERS Safety Report 10049836 (Version 1)
Quarter: 2014Q1

REPORT INFORMATION
  Report Type: Spontaneous
  Country: US (occurrence: None)
  Receive Date: 20140328
  Receipt Date: 20140328
  Transmission Date: 20141002
  Serious: Yes (Hospitalization)
  Sender: FDA-Public Use
  Company Number: US-2014-10529

PATIENT
  Age: 48 Year
  Sex: Female

DRUGS (9)
  1. OPC-41061 (TOLVAPTAN) TABLET [Suspect]
     Indication: CONGENITAL CYSTIC KIDNEY DISEASE
     Route: 048
     Dates: start: 20131016, end: 20140304
  2. LISINOPRIL [Concomitant]
  3. ATENOLOL [Concomitant]
  4. CYMBALTA [Concomitant]
  5. PROTONIX (PANTOPRAZOLE SODIUM) [Concomitant]
  6. SIMVASTATIN [Concomitant]
  7. METFORMIN (METFORMIN HYDROCHLORIDE) [Concomitant]
  8. ERGOCALCIFEROL [Concomitant]
  9. ACETAMINOPHEN (PARACETAMOL) [Concomitant]

REACTIONS (2)
  - Accelerated idioventricular rhythm [None]
  - Nodal rhythm [None]
